FAERS Safety Report 7068104 (Version 2)
Quarter: 2013Q1

REPORT INFORMATION
  Report Type: Spontaneous
  Country: ES (occurrence: ES)
  Receive Date: 20090730
  Receipt Date: 20130312
  Transmission Date: 20140127
  Serious: Yes (Death, Hospitalization)
  Sender: FDA-Public Use
  Company Number: ES-ELI_LILLY_AND_COMPANY-ES200907004443

PATIENT
  Age: 80 Year
  Sex: Female

DRUGS (8)
  1. FORSTEO [Suspect]
     Indication: OSTEOPOROSIS
     Dosage: 20 UG, UNKNOWN
     Route: 058
     Dates: start: 2009
  2. VITAMIN D [Concomitant]
     Dosage: UNK, UNKNOWN
     Route: 065
  3. CALCIUM [Concomitant]
     Dosage: UNK, UNKNOWN
     Route: 065
  4. NOLOTIL [Concomitant]
     Dosage: UNK, EVERY 8 HRS
     Route: 065
  5. PARACETAMOL [Concomitant]
     Dosage: UNK, EVERY 4 HRS
     Route: 065
  6. CONCOR [Concomitant]
     Dosage: UNK, UNKNOWN
     Route: 065
  7. ALPRAZOLAM [Concomitant]
     Dosage: UNK, UNKNOWN
     Route: 065
  8. MOTILIUM [Concomitant]
     Dosage: UNK, UNKNOWN
     Route: 065

REACTIONS (4)
  - Death [Fatal]
  - Diverticulitis [Not Recovered/Not Resolved]
  - Rectal haemorrhage [Unknown]
  - Dizziness [Unknown]
